FAERS Safety Report 24243272 (Version 4)
Quarter: 2025Q2

REPORT INFORMATION
  Report Type: Spontaneous
  Country: US (occurrence: US)
  Receive Date: 20240823
  Receipt Date: 20250428
  Transmission Date: 20250716
  Serious: Yes (Death, Other)
  Sender: LABORATOIRES SERB
  Company Number: US-SERB S.A.S.-2160792

PATIENT
  Age: 63 Year
  Sex: Female

DRUGS (3)
  1. CYANOKIT [Suspect]
     Active Substance: HYDROXOCOBALAMIN
     Indication: Product used for unknown indication
  2. ASCORBIC ACID [Concomitant]
     Active Substance: ASCORBIC ACID
  3. METHYLENE BLUE [Concomitant]
     Active Substance: METHYLENE BLUE

REACTIONS (5)
  - Condition aggravated [Unknown]
  - Laboratory test interference [Unknown]
  - Methaemoglobinaemia [Unknown]
  - Sulphaemoglobinaemia [Fatal]
  - Oxygen saturation decreased [Unknown]
